FAERS Safety Report 12958926 (Version 2)
Quarter: 2017Q1

REPORT INFORMATION
  Report Type: Other
  Country: CA (occurrence: CA)
  Receive Date: 20161121
  Receipt Date: 20170105
  Transmission Date: 20170428
  Serious: Yes (Other)
  Sender: FDA-Public Use
  Company Number: CA-APOTEX-2016AP014577

PATIENT
  Age: 63 Year
  Sex: Male

DRUGS (1)
  1. APO-SALVENT INHALER [Suspect]
     Active Substance: ALBUTEROL
     Indication: ASTHMA
     Dosage: UNK
     Route: 055

REACTIONS (2)
  - Device defective [Recovered/Resolved]
  - Dyspnoea [Recovered/Resolved]
